FAERS Safety Report 5195870-6 (Version None)
Quarter: 2007Q1

REPORT INFORMATION
  Report Type: 
  Country: None (occurrence: None)
  Receive Date: 20070102
  Receipt Date: 20061229
  Transmission Date: 20070707
  Serious: Yes (Hospitalization)
  Sender: FDA-Public Use
  Company Number: JP-JPN-A200602412

PATIENT
  Age: 40 Year
  Sex: Male

DRUGS (5)
  1. EPIVIR [Suspect]
     Indication: HIV INFECTION
     Dosage: 150MG TWICE PER DAY
     Route: 048
     Dates: start: 20040628
  2. ZERIT [Suspect]
     Indication: HIV INFECTION
     Route: 048
     Dates: start: 20050401, end: 20050427
  3. REYATAZ [Suspect]
     Indication: HIV INFECTION
     Route: 048
     Dates: start: 20040628
  4. RETROVIR [Concomitant]
     Indication: HIV INFECTION
     Route: 048
     Dates: start: 20050428
  5. NORVIR [Concomitant]
     Indication: HIV INFECTION
     Route: 048
     Dates: start: 20050822

REACTIONS (5)
  - ABDOMINAL PAIN [None]
  - LIPASE INCREASED [None]
  - PANCREATIC ENZYMES INCREASED [None]
  - PANCREATITIS [None]
  - SPLENOMEGALY [None]
